FAERS Safety Report 20644255 (Version 1)
Quarter: 2022Q1

REPORT INFORMATION
  Report Type: Spontaneous
  Country: US (occurrence: US)
  Receive Date: 20220328
  Receipt Date: 20220328
  Transmission Date: 20220423
  Serious: Yes (Other)
  Sender: FDA-Public Use
  Company Number: US-GLENMARK PHARMACEUTICALS-2022GMK071384

PATIENT

DRUGS (3)
  1. ONDANSETRON [Suspect]
     Active Substance: ONDANSETRON
     Indication: Nausea
     Dosage: UNK, SINGLE (TOOK IT ONCE ONLY)
     Route: 048
     Dates: start: 20220314, end: 20220314
  2. ONDANSETRON [Suspect]
     Active Substance: ONDANSETRON
     Indication: Vomiting
  3. ONDANSETRON [Suspect]
     Active Substance: ONDANSETRON
     Indication: Diarrhoea

REACTIONS (6)
  - Oxygen saturation decreased [Recovered/Resolved]
  - Erythema [Unknown]
  - Urticaria [Unknown]
  - Pruritus [Unknown]
  - Hypersensitivity [Unknown]
  - Product use in unapproved indication [Unknown]

NARRATIVE: CASE EVENT DATE: 20220314
